FAERS Safety Report 7874820-5 (Version None)
Quarter: 2011Q4

REPORT INFORMATION
  Report Type: 
  Country: None (occurrence: None)
  Receive Date: 20111003
  Receipt Date: 20100805
  Transmission Date: 20120403
  Serious: Yes (Other)
  Sender: FDA-Public Use
  Company Number: 2009080003(1)

PATIENT
  Age: 64 Year
  Sex: Female
  Weight: 90.7194 kg

DRUGS (9)
  1. RITALIN [Concomitant]
  2. AMBIEN [Concomitant]
  3. SYNTHROID [Concomitant]
  4. NITROGLYCERIN [Concomitant]
  5. LOPRESSOR (METOPROLOL) [Concomitant]
  6. DEMADEX [Suspect]
     Indication: CARDIAC FAILURE CONGESTIVE
     Dosage: 20 MG (20 MG, 1 IN 1 D), ORAL
     Route: 048
     Dates: start: 19890101, end: 20100701
  7. NOVOLOG MIX 70/30 [Concomitant]
  8. NITRO-DUR [Concomitant]
  9. ASPIRIN [Concomitant]

REACTIONS (1)
  - DRUG INEFFECTIVE [None]
